FAERS Safety Report 5684466-5 (Version None)
Quarter: 2008Q1

REPORT INFORMATION
  Report Type: 
  Country: None (occurrence: None)
  Receive Date: 20080328
  Receipt Date: 20080318
  Transmission Date: 20080703
  Serious: Yes (Other)
  Sender: FDA-Public Use
  Company Number: US-GENENTECH-257963

PATIENT
  Sex: Male
  Weight: 36.28 kg

DRUGS (8)
  1. NUTROPIN [Suspect]
     Indication: GROWTH HORMONE DEFICIENCY
     Dosage: 1.8 MG, QD
     Route: 058
     Dates: start: 20070416
  2. LEVOTHYROXINE SODIUM [Concomitant]
     Indication: DRUG USE FOR UNKNOWN INDICATION
     Dosage: 88 A?G, QD
     Route: 048
  3. HYDROCORTISONE [Concomitant]
     Indication: DRUG USE FOR UNKNOWN INDICATION
     Dosage: 10 MG, QAM
  4. HYDROCORTISONE [Concomitant]
     Dosage: 5 MG, UNK
  5. HYDROCORTISONE [Concomitant]
     Dosage: 10 MG, QHS
  6. DDAVP (NEEDS NO REFRIGERATION) [Concomitant]
     Indication: DRUG USE FOR UNKNOWN INDICATION
     Dosage: 0.3 MG, QHS
  7. DDAVP (NEEDS NO REFRIGERATION) [Concomitant]
     Dosage: 0.1 MG, QAM
  8. HYDROCORTISONE [Concomitant]
     Dosage: 50 MG, UNK
     Route: 030

REACTIONS (1)
  - CRANIOPHARYNGIOMA [None]
